FAERS Safety Report 4413457-7 (Version None)
Quarter: 2004Q3

REPORT INFORMATION
  Report Type: 
  Country: None (occurrence: None)
  Receive Date: 20040727
  Receipt Date: 20040714
  Transmission Date: 20050211
  Serious: Yes (Death)
  Sender: FDA-Public Use
  Company Number: 2004RL000080

PATIENT
  Age: 47 Year
  Sex: Male

DRUGS (1)
  1. PROPAFENONE HCL [Suspect]
     Indication: DRUG USE FOR UNKNOWN INDICATION
     Dosage: 2380 MG;X1;PO
     Route: 048
     Dates: start: 20031119, end: 20031119

REACTIONS (3)
  - ARRHYTHMIA [None]
  - COMPLETED SUICIDE [None]
  - INTENTIONAL OVERDOSE [None]
